FAERS Safety Report 11522794 (Version 1)
Quarter: 2015Q3

REPORT INFORMATION
  Report Type: Other
  Country: SE (occurrence: SE)
  Receive Date: 20150918
  Receipt Date: 20150918
  Transmission Date: 20151125
  Serious: Yes (Other)
  Sender: FDA-Public Use
  Company Number: SE-WARNER CHILCOTT, LLC-1042088

PATIENT
  Age: 75 Year
  Sex: Female

DRUGS (1)
  1. ACTONEL [Suspect]
     Active Substance: RISEDRONATE SODIUM
     Route: 048

REACTIONS (2)
  - Atypical femur fracture [Unknown]
  - Pathological fracture [Unknown]
